FAERS Safety Report 9617575 (Version 2)
Quarter: 2013Q4

REPORT INFORMATION
  Report Type: Spontaneous
  Country: BG (occurrence: BG)
  Receive Date: 20131011
  Receipt Date: 20131011
  Transmission Date: 20140711
  Serious: Yes (Other)
  Sender: FDA-Public Use
  Company Number: BG-BAYER-2013-123549

PATIENT
  Age: 54 Year
  Sex: Male

DRUGS (5)
  1. ASPIRIN PROTECT [Suspect]
     Indication: MYOCARDIAL INFARCTION
     Dosage: 100 MG, QD
     Route: 048
     Dates: start: 20130620
  2. TICAGRELOR [Suspect]
     Indication: MYOCARDIAL INFARCTION
     Dosage: 90 MG, BID
     Route: 048
     Dates: start: 20130620
  3. CRESTOR [Suspect]
     Indication: MYOCARDIAL INFARCTION
     Dosage: 10 MG, QD
     Route: 048
     Dates: start: 20130620
  4. CORDARONE [Suspect]
     Indication: MYOCARDIAL INFARCTION
     Dosage: 200 MG, BID
     Dates: start: 20130620
  5. DICLOFENAC DUO [Concomitant]
     Indication: GOUT
     Dosage: 75 MG, QD
     Route: 048

REACTIONS (6)
  - Oedema peripheral [Recovered/Resolved]
  - Arthralgia [Recovered/Resolved]
  - Lip swelling [Recovered/Resolved]
  - Oral pain [Recovered/Resolved]
  - Impaired healing [Unknown]
  - Coagulation time prolonged [Unknown]
